FAERS Safety Report 21168537 (Version 3)
Quarter: 2022Q3

REPORT INFORMATION
  Report Type: Spontaneous
  Country: FR (occurrence: FR)
  Receive Date: 20220803
  Receipt Date: 20220905
  Transmission Date: 20221027
  Serious: Yes (Other)
  Sender: FDA-Public Use
  Company Number: FR-NOVARTISPH-NVSC2022FR128927

PATIENT
  Age: 70 Year
  Sex: Female

DRUGS (2)
  1. LETROZOLE [Suspect]
     Active Substance: LETROZOLE
     Indication: Breast cancer
     Dosage: UNK
     Route: 065
  2. PALBOCICLIB [Suspect]
     Active Substance: PALBOCICLIB
     Indication: Breast cancer
     Dosage: UNK
     Route: 065

REACTIONS (28)
  - Neutropenia [Recovered/Resolved]
  - Decreased appetite [Recovering/Resolving]
  - Malnutrition [Recovering/Resolving]
  - Weight decreased [Recovering/Resolving]
  - COVID-19 [Unknown]
  - Anaemia [Not Recovered/Not Resolved]
  - Balance disorder [Recovered/Resolved]
  - Agitation [Unknown]
  - Taste disorder [Recovering/Resolving]
  - Terminal insomnia [Recovering/Resolving]
  - Dysgeusia [Recovering/Resolving]
  - Hot flush [Recovered/Resolved]
  - Hyperhidrosis [Recovered/Resolved]
  - Dysgeusia [Unknown]
  - Dry skin [Recovered/Resolved]
  - Memory impairment [Not Recovered/Not Resolved]
  - Fatigue [Recovered/Resolved]
  - Hyperhidrosis [Unknown]
  - Alopecia [Unknown]
  - Nausea [Recovered/Resolved]
  - Diarrhoea [Recovered/Resolved]
  - Anxiety [Recovered/Resolved]
  - Dizziness [Recovered/Resolved]
  - Abdominal pain [Recovered/Resolved]
  - Insomnia [Recovering/Resolving]
  - Vision blurred [Unknown]
  - Ageusia [Recovering/Resolving]
  - Age-related macular degeneration [Unknown]

NARRATIVE: CASE EVENT DATE: 20220715
